FAERS Safety Report 5970279-3 (Version None)
Quarter: 2008Q4

REPORT INFORMATION
  Report Type: 
  Country: None (occurrence: None)
  Receive Date: 20081126
  Receipt Date: 20081119
  Transmission Date: 20090506
  Serious: Yes (Hospitalization)
  Sender: FDA-Public Use
  Company Number: FR-PFIZER INC-2008098404

PATIENT
  Age: 69 Year
  Sex: Female

DRUGS (7)
  1. SOLU-MEDROL [Suspect]
     Route: 042
     Dates: start: 20080929, end: 20081001
  2. CISPLATIN [Suspect]
     Indication: CERVIX NEOPLASM
     Route: 042
     Dates: start: 20080929, end: 20080929
  3. APREPITANT [Concomitant]
     Route: 048
     Dates: start: 20080929
  4. ONDANSETRON [Concomitant]
     Route: 042
     Dates: start: 20080929, end: 20080929
  5. ALIZAPRIDE [Concomitant]
     Route: 042
     Dates: start: 20080929, end: 20080929
  6. DOMPERIDONE [Concomitant]
     Route: 048
     Dates: start: 20080930
  7. SOLUPRED [Concomitant]
     Route: 048
     Dates: start: 20080930

REACTIONS (2)
  - RASH GENERALISED [None]
  - RASH MACULAR [None]
